FAERS Safety Report 24153791 (Version 1)
Quarter: 2024Q3

REPORT INFORMATION
  Report Type: Report from Study
  Country: US (occurrence: US)
  Receive Date: 20240730
  Receipt Date: 20240730
  Transmission Date: 20241017
  Serious: Yes (Other)
  Sender: ABBVIE
  Company Number: US-ABBVIE-5855813

PATIENT
  Sex: Female

DRUGS (3)
  1. SKYRIZI [Suspect]
     Active Substance: RISANKIZUMAB-RZAA
     Indication: Psoriatic arthropathy
     Dosage: FORM STRENGTH : 150MG/ML WEEK 4
     Route: 058
     Dates: start: 20240327, end: 20240327
  2. SKYRIZI [Suspect]
     Active Substance: RISANKIZUMAB-RZAA
     Dosage: FORM STRENGTH : 150MG/ML
     Route: 058
     Dates: start: 202406
  3. SKYRIZI [Suspect]
     Active Substance: RISANKIZUMAB-RZAA
     Dosage: FORM STRENGTH : 150MG/ML WEEK 0
     Route: 058
     Dates: start: 20240221, end: 20240221

REACTIONS (5)
  - Therapeutic nerve ablation [Unknown]
  - Pain [Recovering/Resolving]
  - General physical health deterioration [Unknown]
  - Back disorder [Unknown]
  - Gait disturbance [Unknown]

NARRATIVE: CASE EVENT DATE: 20240101
